FAERS Safety Report 12212633 (Version 1)
Quarter: 2016Q1

REPORT INFORMATION
  Report Type: Spontaneous
  Country: FR (occurrence: FR)
  Receive Date: 20160328
  Receipt Date: 20160328
  Transmission Date: 20160526
  Serious: Yes (Hospitalization)
  Sender: FDA-Public Use
  Company Number: FR-ASTRAZENECA-2016SE31951

PATIENT
  Sex: Female

DRUGS (4)
  1. LEPTICUR [Concomitant]
     Active Substance: TROPATEPINE HYDROCHLORIDE
  2. XEROQUEL [Suspect]
     Active Substance: QUETIAPINE FUMARATE
     Indication: MANIA
     Route: 048
     Dates: start: 20151124, end: 20160122
  3. TERALITHE [Suspect]
     Active Substance: LITHIUM CARBONATE
     Indication: MANIA
     Dosage: 3 PER DAY
     Route: 065
     Dates: start: 20151221
  4. LYSANXIA [Concomitant]
     Active Substance: PRAZEPAM

REACTIONS (2)
  - Extrapyramidal disorder [Not Recovered/Not Resolved]
  - Alopecia [Not Recovered/Not Resolved]

NARRATIVE: CASE EVENT DATE: 20160113
